FAERS Safety Report 21208666 (Version 1)
Quarter: 2022Q3

REPORT INFORMATION
  Report Type: Spontaneous
  Country: US (occurrence: US)
  Receive Date: 20220812
  Receipt Date: 20220812
  Transmission Date: 20221027
  Serious: Yes (Hospitalization)
  Sender: FDA-Public Use
  Company Number: US-MYLANLABS-2022M1085917

PATIENT
  Age: 19 Year
  Sex: Male

DRUGS (15)
  1. GABAPENTIN [Suspect]
     Active Substance: GABAPENTIN
     Indication: Central pain syndrome
     Dosage: UNK
     Route: 065
  2. PREGABALIN [Suspect]
     Active Substance: PREGABALIN
     Indication: Central pain syndrome
     Dosage: UNK
     Route: 065
  3. METHADONE [Suspect]
     Active Substance: METHADONE HYDROCHLORIDE
     Indication: Central pain syndrome
     Dosage: UNK
     Route: 065
  4. LIDOCAINE [Suspect]
     Active Substance: LIDOCAINE
     Indication: Central pain syndrome
     Dosage: 1 MILLIGRAM/KILOGRAM (IV BOLUS)
     Route: 042
  5. LIDOCAINE [Suspect]
     Active Substance: LIDOCAINE
     Dosage: 15 MICROGRAM/KILOGRAM, QMINUTE (IV INFUSION)
     Route: 042
  6. LIDOCAINE [Suspect]
     Active Substance: LIDOCAINE
     Dosage: 35 MICROGRAM/KILOGRAM, QMINUTE ((IV INFUSION))
     Route: 042
  7. LIDOCAINE [Suspect]
     Active Substance: LIDOCAINE
     Dosage: 30 MICROGRAM/KILOGRAM, QH (IV INFUSION)(DECREASED THEN STOPPED)
     Route: 042
  8. NORTRIPTYLINE [Concomitant]
     Active Substance: NORTRIPTYLINE
     Indication: Central pain syndrome
     Dosage: UNK
     Route: 065
  9. ACETAMINOPHEN [Concomitant]
     Active Substance: ACETAMINOPHEN
     Indication: Central pain syndrome
     Dosage: UNK
     Route: 065
  10. ACETAMINOPHEN [Concomitant]
     Active Substance: ACETAMINOPHEN
     Dosage: 1000 MILLIGRAM, TID (THREE TIMES DAILY)
     Route: 065
  11. KETAMINE [Concomitant]
     Active Substance: KETAMINE
     Indication: Central pain syndrome
     Dosage: UNK, (INFUSION)
     Route: 065
  12. HYDROMORPHONE [Concomitant]
     Active Substance: HYDROMORPHONE
     Indication: Central pain syndrome
     Dosage: UNK (INFUSION)
     Route: 065
  13. HYDROMORPHONE [Concomitant]
     Active Substance: HYDROMORPHONE
     Dosage: 3 MILLIGRAM, Q4H (AS NEEDED) INFUSION
     Route: 065
  14. PREDNISONE [Concomitant]
     Active Substance: PREDNISONE
     Indication: Sickle cell anaemia with crisis
     Dosage: 40 MILLIGRAM (TAPERED DOSE)
     Route: 065
  15. IBUPROFEN [Concomitant]
     Active Substance: IBUPROFEN
     Indication: Central pain syndrome
     Dosage: 800 MILLIGRAM, TID (THREE TIMES DAILY)
     Route: 065

REACTIONS (4)
  - Therapy non-responder [Unknown]
  - Hyperaesthesia [Recovering/Resolving]
  - Dizziness [Unknown]
  - Vision blurred [Unknown]
